FAERS Safety Report 4402652-9 (Version None)
Quarter: 2004Q3

REPORT INFORMATION
  Report Type: 
  Country: None (occurrence: None)
  Receive Date: 20040715
  Receipt Date: 20040630
  Transmission Date: 20050211
  Serious: Yes (Other)
  Sender: FDA-Public Use
  Company Number: 702108

PATIENT
  Age: 65 Year
  Sex: Female

DRUGS (1)
  1. AMEVIVE [Suspect]
     Indication: PSORIASIS
     Dosage: MG QW IM
     Route: 030

REACTIONS (1)
  - SURGERY [None]
